FAERS Safety Report 24714710 (Version 1)
Quarter: 2024Q4

REPORT INFORMATION
  Report Type: Spontaneous
  Country: SE (occurrence: SE)
  Receive Date: 20241210
  Receipt Date: 20241210
  Transmission Date: 20250115
  Serious: Yes (Death)
  Sender: JOHNSON AND JOHNSON
  Company Number: None

PATIENT
  Age: 93 Year
  Sex: Female
  Weight: 70 kg

DRUGS (8)
  1. XARELTO [Suspect]
     Active Substance: RIVAROXABAN
     Indication: Atrial fibrillation
     Dosage: 15 MG, QD
     Route: 048
     Dates: start: 20240914, end: 20241108
  2. OMEPRAZOLE [Concomitant]
     Active Substance: OMEPRAZOLE
     Indication: Product used for unknown indication
     Dosage: 20 MG, QD
  3. Folsyra eql pharma [Concomitant]
     Indication: Product used for unknown indication
     Dosage: 1 MG, QD
     Route: 048
  4. METOPROLOL [Concomitant]
     Active Substance: METOPROLOL
     Indication: Product used for unknown indication
     Dosage: 50 MG, QD
  5. Betolvex [Concomitant]
     Indication: Product used for unknown indication
     Dosage: 1 MG, QD
  6. HYDROKLORTIAZID EVOLAN [Concomitant]
     Indication: Product used for unknown indication
     Dosage: 25 MG, QD
  7. PARACETAMOL NET [Concomitant]
     Indication: Product used for unknown indication
     Dosage: 500 MG
  8. PREDNISOLONE [Concomitant]
     Active Substance: PREDNISOLONE
     Indication: Product used for unknown indication
     Dosage: 5 MG

REACTIONS (2)
  - Cerebral infarction [Fatal]
  - Drug ineffective [Fatal]

NARRATIVE: CASE EVENT DATE: 20241024
